FAERS Safety Report 7310631-7 (Version None)
Quarter: 2011Q1

REPORT INFORMATION
  Report Type: 
  Country: None (occurrence: None)
  Receive Date: 20110224
  Receipt Date: 20100525
  Transmission Date: 20110831
  Serious: No
  Sender: FDA-Public Use
  Company Number: US-BRISTOL-MYERS SQUIBB COMPANY-15120975

PATIENT
  Age: 78 Year
  Sex: Female

DRUGS (3)
  1. GLUCOTROL [Concomitant]
  2. METFORMIN HCL [Suspect]
  3. LANTUS [Concomitant]
     Indication: TYPE 2 DIABETES MELLITUS
     Dosage: DOSE INCREASED TO 12IU.

REACTIONS (1)
  - INTESTINAL FUNCTIONAL DISORDER [None]
